FAERS Safety Report 19741983 (Version 2)
Quarter: 2021Q4

REPORT INFORMATION
  Report Type: Spontaneous
  Country: US (occurrence: US)
  Receive Date: 20210824
  Receipt Date: 20211001
  Transmission Date: 20220303
  Serious: Yes (Hospitalization, Other)
  Sender: FDA-Public Use
  Company Number: 2021A688722

PATIENT
  Age: 762 Month
  Sex: Male
  Weight: 120.2 kg

DRUGS (5)
  1. FASENRA [Suspect]
     Active Substance: BENRALIZUMAB
     Indication: Asthma
     Route: 058
  2. VITAMIN C [Concomitant]
     Active Substance: ASCORBIC ACID
  3. VITAMIN D [Concomitant]
     Active Substance: VITAMIN D NOS
  4. VITAMIN B12 [Concomitant]
     Active Substance: CYANOCOBALAMIN
  5. PFIZER VACCINE [Concomitant]

REACTIONS (2)
  - Asthma [Recovered/Resolved]
  - Inappropriate schedule of product administration [Recovered/Resolved]

NARRATIVE: CASE EVENT DATE: 20210401
